FAERS Safety Report 26200537 (Version 1)
Quarter: 2025Q4

REPORT INFORMATION
  Report Type: Report from Study
  Country: EU (occurrence: EU)
  Receive Date: 20251225
  Receipt Date: 20251225
  Transmission Date: 20260117
  Serious: Yes (Death)
  Sender: ABBVIE
  Company Number: EU-ABBVIE-6606567

PATIENT
  Age: 75 Year
  Sex: Male

DRUGS (1)
  1. FOSCARBIDOPA\FOSLEVODOPA [Suspect]
     Active Substance: FOSCARBIDOPA\FOSLEVODOPA
     Indication: Parkinson^s disease
     Dosage: (SD: 0.30ML), CRN: 0.19ML/H, CR: 0.21ML/H, CRH: 0.24ML/H, ED: 0.15ML
     Route: 058
     Dates: start: 20240924

REACTIONS (1)
  - Death [Fatal]

NARRATIVE: CASE EVENT DATE: 20251221
